FAERS Safety Report 15059160 (Version 2)
Quarter: 2018Q3

REPORT INFORMATION
  Report Type: Spontaneous
  Country: HU (occurrence: HU)
  Receive Date: 20180625
  Receipt Date: 20180706
  Transmission Date: 20181010
  Serious: Yes (Hospitalization, Disabling, Other)
  Sender: FDA-Public Use
  Company Number: HU-BAYER-2018-117566

PATIENT
  Sex: Female

DRUGS (2)
  1. CILOXAN [Suspect]
     Active Substance: CIPROFLOXACIN HYDROCHLORIDE
     Indication: OTITIS MEDIA
     Dosage: UNK
     Dates: start: 201503
  2. CIPROFLOXACIN. [Suspect]
     Active Substance: CIPROFLOXACIN
     Indication: URINARY TRACT INFECTION
     Dosage: 500 MG, QD
     Dates: start: 201410

REACTIONS (62)
  - Sensory disturbance [Not Recovered/Not Resolved]
  - Multiple chemical sensitivity [Not Recovered/Not Resolved]
  - Myoclonus [None]
  - Lymphadenitis [None]
  - Impaired work ability [None]
  - Detoxification [None]
  - Head discomfort [None]
  - Sleep apnoea syndrome [Not Recovered/Not Resolved]
  - Urinary incontinence [Not Recovered/Not Resolved]
  - Hypovolaemia [None]
  - Vitreous floaters [None]
  - Visual impairment [None]
  - Cerebral vasoconstriction [None]
  - Ovarian cyst [None]
  - Hiatus hernia [None]
  - Tendonitis [None]
  - Bundle branch block left [None]
  - Ear discomfort [None]
  - Nasal obstruction [None]
  - Neurosensory hypoacusis [Not Recovered/Not Resolved]
  - Gastrointestinal pain [Not Recovered/Not Resolved]
  - Cerebral atrophy [None]
  - Gastrooesophageal reflux disease [None]
  - Epstein-Barr virus infection [None]
  - Angina pectoris [None]
  - Hypertension [Not Recovered/Not Resolved]
  - Antiphospholipid syndrome [None]
  - Vision blurred [None]
  - Periarthritis [None]
  - Insulin resistance [None]
  - Anal incontinence [Not Recovered/Not Resolved]
  - Abnormal weight gain [None]
  - Uveitis [None]
  - Tooth discolouration [None]
  - Dental caries [None]
  - Transient ischaemic attack [Not Recovered/Not Resolved]
  - Gallbladder obstruction [Not Recovered/Not Resolved]
  - Tinnitus [None]
  - Arterial injury [None]
  - Corneal bleeding [None]
  - Hypersensitivity [None]
  - Auriculotemporal syndrome [None]
  - Hair colour changes [None]
  - Headache [None]
  - Dry eye [None]
  - Diarrhoea [None]
  - Insomnia [Not Recovered/Not Resolved]
  - Neuropathy peripheral [Not Recovered/Not Resolved]
  - Sjogren^s syndrome [None]
  - Hypertension [None]
  - Uterine leiomyoma [None]
  - Toxicity to various agents [None]
  - Herpes zoster [None]
  - Tooth extraction [None]
  - Hypertension [Not Recovered/Not Resolved]
  - Hormone level abnormal [Not Recovered/Not Resolved]
  - Blood count abnormal [Not Recovered/Not Resolved]
  - Herpes virus infection [Not Recovered/Not Resolved]
  - Phagocytosis [None]
  - Gastrointestinal bacterial overgrowth [None]
  - Anhidrosis [None]
  - Mitral valve incompetence [None]

NARRATIVE: CASE EVENT DATE: 2014
